FAERS Safety Report 5123691-9 (Version None)
Quarter: 2006Q4

REPORT INFORMATION
  Report Type: 
  Country: None (occurrence: None)
  Receive Date: 20061010
  Receipt Date: 20060927
  Transmission Date: 20070319
  Serious: Yes (Life-Threatening, Hospitalization, Other)
  Sender: FDA-Public Use
  Company Number: PHBS2006JP15028

PATIENT
  Age: 64 Year
  Sex: Female

DRUGS (5)
  1. METHOTREXATE [Concomitant]
     Indication: STEM CELL TRANSPLANT
     Route: 065
  2. PREDNISOLONE [Concomitant]
     Indication: STEM CELL TRANSPLANT
     Route: 048
  3. DRUG THERAPY NOS [Concomitant]
     Indication: ABSCESS
  4. CYCLOSPORINE [Suspect]
     Indication: STEM CELL TRANSPLANT
     Route: 065
  5. CYCLOSPORINE [Suspect]
     Route: 048

REACTIONS (4)
  - BONE MARROW TRANSPLANT REJECTION [None]
  - FACE OEDEMA [None]
  - HERPES ZOSTER [None]
  - PHARYNGEAL OEDEMA [None]
